FAERS Safety Report 22193659 (Version 9)
Quarter: 2024Q1

REPORT INFORMATION
  Report Type: Spontaneous
  Country: US (occurrence: US)
  Receive Date: 20230410
  Receipt Date: 20240126
  Transmission Date: 20240410
  Serious: No
  Sender: FDA-Public Use
  Company Number: US-PFIZER INC-PV202300064500

PATIENT
  Age: 67 Year
  Sex: Female
  Weight: 86.168 kg

DRUGS (2)
  1. CIBINQO [Suspect]
     Active Substance: ABROCITINIB
     Indication: Dermatitis
     Dosage: 100 MG, DAILY
     Route: 048
     Dates: start: 20230424
  2. DUPIXENT [Suspect]
     Active Substance: DUPILUMAB
     Indication: Dermatitis
     Dosage: 100 MG, WEEKLY
     Dates: start: 20230113

REACTIONS (5)
  - Sleep disorder [Unknown]
  - Rash [Unknown]
  - Product after taste [Unknown]
  - Epigastric discomfort [Unknown]
  - Off label use [Unknown]

NARRATIVE: CASE EVENT DATE: 20230101
